FAERS Safety Report 8900884 (Version 1)
Quarter: 2012Q4

REPORT INFORMATION
  Report Type: 
  Country: FR (occurrence: FR)
  Receive Date: 20121109
  Receipt Date: 20121109
  Transmission Date: 20130627
  Serious: Yes (Hospitalization)
  Sender: FDA-Public Use
  Company Number: FR-ROCHE-767566

PATIENT
  Age: 64 Year
  Sex: Female

DRUGS (3)
  1. ROCEPHINE [Suspect]
     Indication: PNEUMONIA
     Route: 042
     Dates: start: 20110118, end: 20110125
  2. COLCHICINE [Suspect]
     Indication: BEHCET^S SYNDROME
     Route: 048
     Dates: start: 20110104, end: 20110125
  3. XYLOCAINE [Concomitant]
     Route: 065

REACTIONS (5)
  - Neutropenia [Recovered/Resolved]
  - Thrombocytopenia [Recovered/Resolved]
  - Anaemia [Recovering/Resolving]
  - Leukopenia [Recovered/Resolved]
  - Lymphopenia [Not Recovered/Not Resolved]
